FAERS Safety Report 19082715 (Version 1)
Quarter: 2021Q2

REPORT INFORMATION
  Report Type: Report from Study
  Country: US (occurrence: US)
  Receive Date: 20210401
  Receipt Date: 20210401
  Transmission Date: 20210717
  Serious: Yes (Other)
  Sender: FDA-Public Use
  Company Number: US-ACCORD-220714

PATIENT
  Age: 23 Month
  Sex: Female

DRUGS (1)
  1. METHOTREXATE. [Suspect]
     Active Substance: METHOTREXATE
     Indication: MEDULLOBLASTOMA
     Route: 037

REACTIONS (4)
  - Pancytopenia [Recovered/Resolved]
  - Off label use [Unknown]
  - Deafness [Recovered/Resolved]
  - Pyrexia [Recovered/Resolved]
